FAERS Safety Report 5541063-X (Version None)
Quarter: 2007Q4

REPORT INFORMATION
  Report Type: 
  Country: None (occurrence: None)
  Receive Date: 20071209
  Receipt Date: 20061227
  Transmission Date: 20080405
  Serious: No
  Sender: FDA-Public Use
  Company Number: US-AMGEN-KDL205000

PATIENT
  Sex: Male

DRUGS (2)
  1. ENBREL [Suspect]
     Indication: PSORIATIC ARTHROPATHY
     Route: 058
     Dates: start: 20050301
  2. SULFASALAZINE [Concomitant]
     Route: 048

REACTIONS (3)
  - BRONCHITIS [None]
  - JOINT SWELLING [None]
  - RESPIRATORY TRACT CONGESTION [None]
